FAERS Safety Report 6930295-1 (Version None)
Quarter: 2010Q3

REPORT INFORMATION
  Report Type: 
  Country: None (occurrence: None)
  Receive Date: 20100813
  Receipt Date: 20100730
  Transmission Date: 20110219
  Serious: Yes (Hospitalization)
  Sender: FDA-Public Use
  Company Number: 2010003291

PATIENT
  Age: 72 Year
  Sex: Female
  Weight: 45 kg

DRUGS (13)
  1. ERLOTINIB HYDROCHLORIDE [Suspect]
     Indication: LUNG ADENOCARCINOMA
     Dosage: (150 MG, QD), ORAL
     Route: 048
     Dates: start: 20090609, end: 20100729
  2. UREA (UREA) [Concomitant]
  3. RABEPRAZOLE SODIUM [Concomitant]
  4. AMBROXOL (AMBROXOL) [Concomitant]
  5. MAGNESIUM OXIDE (MAGNESIUM OXIDE) [Concomitant]
  6. LOXOPROFEN (LOXOPROFEN) [Concomitant]
  7. VESICARE [Concomitant]
  8. LENDORM [Concomitant]
  9. FELBINAC (FELBINAC) [Concomitant]
  10. HIRUDOID (HEPARINOID) [Concomitant]
  11. TOCLASE (PENTOXYVERINE CITRATE) [Concomitant]
  12. CLOBETASOL PROPIONATE [Concomitant]
  13. KETOPROFEN [Concomitant]

REACTIONS (9)
  - BACK PAIN [None]
  - DRY SKIN [None]
  - ERYTHEMA [None]
  - INFECTIVE SPONDYLITIS [None]
  - INFLAMMATION [None]
  - NAIL DISORDER [None]
  - OEDEMA PERIPHERAL [None]
  - RASH [None]
  - SKIN EXFOLIATION [None]
